FAERS Safety Report 5444991-9 (Version None)
Quarter: 2007Q3

REPORT INFORMATION
  Report Type: 
  Country: None (occurrence: None)
  Receive Date: 20070904
  Receipt Date: 20070904
  Transmission Date: 20080115
  Serious: Yes (Hospitalization, Other)
  Sender: FDA-Public Use
  Company Number: None

PATIENT
  Age: 71 Year
  Sex: Male
  Weight: 93.441 kg

DRUGS (2)
  1. CRESTOR [Suspect]
     Indication: CEREBROVASCULAR ACCIDENT
     Dosage: 40MG DAILY PO
     Route: 048
     Dates: start: 20061208, end: 20070716
  2. CRESTOR [Suspect]
     Indication: PROPHYLAXIS
     Dosage: 40MG DAILY PO
     Route: 048
     Dates: start: 20061208, end: 20070716

REACTIONS (6)
  - ACTIVITIES OF DAILY LIVING IMPAIRED [None]
  - AMNESIA [None]
  - COMMUNICATION DISORDER [None]
  - CONFUSIONAL STATE [None]
  - FEEDING DISORDER [None]
  - MENTAL IMPAIRMENT [None]
